FAERS Safety Report 10473597 (Version 2)
Quarter: 2014Q3

REPORT INFORMATION
  Report Type: Report from Study
  Country: None (occurrence: GB)
  Receive Date: 20140924
  Receipt Date: 20140924
  Transmission Date: 20150326
  Serious: Yes (Hospitalization)
  Sender: FDA-Public Use
  Company Number: GB-CELGENE-167-50794-14061321

PATIENT
  Age: 77 Year
  Sex: Female
  Weight: 74.4 kg

DRUGS (9)
  1. VORINOSTAT [Suspect]
     Active Substance: VORINOSTAT
     Indication: ACUTE MYELOID LEUKAEMIA
     Dosage: 600 MILLIGRAM
     Route: 048
     Dates: start: 20140515, end: 20140520
  2. PARACETAMOL [Concomitant]
     Active Substance: ACETAMINOPHEN
     Indication: PAIN
     Dosage: 4 GRAM
     Route: 065
     Dates: end: 20140527
  3. ACICLOVIR [Concomitant]
     Active Substance: ACYCLOVIR
     Indication: INFECTION
     Route: 065
     Dates: start: 20140421, end: 20140527
  4. PARACETAMOL [Concomitant]
     Active Substance: ACETAMINOPHEN
     Indication: PYREXIA
  5. LINEZOLID. [Concomitant]
     Active Substance: LINEZOLID
     Indication: SOFT TISSUE INFECTION
     Dosage: 1000 MILLIGRAM
     Route: 065
     Dates: start: 20140425, end: 20140527
  6. OMEPRAZOLE. [Concomitant]
     Active Substance: OMEPRAZOLE
     Indication: PRODUCT USED FOR UNKNOWN INDICATION
     Dosage: 1000 MILLIGRAM
     Route: 065
     Dates: end: 20140527
  7. BISOPROLOL [Concomitant]
     Active Substance: BISOPROLOL
     Indication: HYPERTENSION
     Dosage: 5 MILLIGRAM
     Route: 065
     Dates: end: 20140527
  8. POSACONAZOLE [Concomitant]
     Active Substance: POSACONAZOLE
     Indication: FUNGAL INFECTION
     Dosage: 800 MILLIGRAM
     Route: 065
     Dates: start: 20140421, end: 20140527
  9. VIDAZA [Suspect]
     Active Substance: AZACITIDINE
     Indication: ACUTE MYELOID LEUKAEMIA
     Dosage: 140 MILLIGRAM
     Route: 058
     Dates: start: 20140512, end: 20140520

REACTIONS (3)
  - Nausea [Recovered/Resolved]
  - Febrile neutropenia [Recovered/Resolved]
  - Vulval ulceration [Recovered/Resolved]

NARRATIVE: CASE EVENT DATE: 20140523
